FAERS Safety Report 5680584-6 (Version None)
Quarter: 2008Q1

REPORT INFORMATION
  Report Type: 
  Country: None (occurrence: None)
  Receive Date: 20080326
  Receipt Date: 20080320
  Transmission Date: 20080703
  Serious: Yes (Death)
  Sender: FDA-Public Use
  Company Number: FR-ABBOTT-07P-056-0419852-00

PATIENT
  Age: 41 Year
  Sex: Male

DRUGS (3)
  1. VALPROATE SODIUM TABLET PR [Suspect]
     Indication: EPILEPSY
     Route: 048
  2. CARBAMAZEPINE [Suspect]
     Indication: EPILEPSY
     Route: 048
  3. ERGENYL CHRONO [Concomitant]
     Indication: EPILEPSY
     Route: 048

REACTIONS (3)
  - CEREBROVASCULAR ACCIDENT [None]
  - EPILEPSY [None]
  - THERAPEUTIC RESPONSE UNEXPECTED WITH DRUG SUBSTITUTION [None]
